FAERS Safety Report 4311822-X (Version None)
Quarter: 2004Q1

REPORT INFORMATION
  Report Type: 
  Country: None (occurrence: None)
  Receive Date: 20040304
  Receipt Date: 20030717
  Transmission Date: 20041129
  Serious: Yes (Hospitalization)
  Sender: FDA-Public Use
  Company Number: WAES 0307USA02170

PATIENT
  Age: 42 Year
  Sex: Female

DRUGS (14)
  1. [THERAPY UNSPECIFIED] [Suspect]
     Route: 051
     Dates: start: 20030511, end: 20030501
  2. ACETAMINOPHEN [Concomitant]
     Indication: JOINT SPRAIN
     Route: 048
     Dates: start: 20030305
  3. NYQUIL [Concomitant]
     Indication: NASOPHARYNGITIS
     Route: 048
     Dates: start: 20011126
  4. VICKS DAYQUIL SINUS PRESSURE + PAIN RELIEF W/ IBUPROFEN [Concomitant]
     Indication: NASOPHARYNGITIS
     Route: 048
     Dates: start: 20010101
  5. TYLENOL PM [Concomitant]
     Indication: INSOMNIA
     Route: 048
     Dates: start: 19980101
  6. BENADRYL [Concomitant]
     Indication: INSOMNIA
     Route: 048
     Dates: start: 19980101
  7. AVIANE-21 [Concomitant]
     Indication: ENDOMETRIOSIS
     Route: 048
     Dates: start: 20030319
  8. HYDRODIURIL [Concomitant]
     Indication: HYPERTENSION
     Route: 048
     Dates: start: 19950101
  9. IBUPROFEN [Concomitant]
     Indication: JOINT SPRAIN
     Route: 048
     Dates: start: 20030310
  10. IRON (UNSPECIFIED) AND VITAMINS (UNSPECIFIED) [Concomitant]
     Indication: NUTRITIONAL SUPPORT
     Route: 048
     Dates: start: 20030203
  11. PRINIVIL [Suspect]
     Indication: HYPERTENSION
     Route: 048
     Dates: start: 20020307, end: 20030511
  12. PRINIVIL [Suspect]
     Route: 048
     Dates: start: 19950101, end: 20011214
  13. STUDY DRUG (UNSPECIFIED) [Concomitant]
     Indication: OBESITY
     Dates: start: 20021111
  14. STUDY DRUG (UNSPECIFIED) [Concomitant]
     Dates: start: 20011112, end: 20021110

REACTIONS (8)
  - CHEST DISCOMFORT [None]
  - CHEST PAIN [None]
  - DYSPNOEA [None]
  - HYPERSENSITIVITY [None]
  - HYPOKALAEMIA [None]
  - PARAESTHESIA ORAL [None]
  - SWELLING FACE [None]
  - TACHYCARDIA [None]
